FAERS Safety Report 15566164 (Version 2)
Quarter: 2018Q4

REPORT INFORMATION
  Report Type: Report from Study
  Country: JP (occurrence: JP)
  Receive Date: 20181030
  Receipt Date: 20181030
  Transmission Date: 20190205
  Serious: Yes (Hospitalization)
  Sender: FDA-Public Use
  Company Number: JP-AMGEN-JPNNI2018150823

PATIENT
  Age: 83 Year
  Sex: Male

DRUGS (3)
  1. CINACALCET HCL - KHK [Suspect]
     Active Substance: CINACALCET HYDROCHLORIDE
     Indication: PRODUCT USED FOR UNKNOWN INDICATION
     Dosage: UNK
     Route: 048
     Dates: start: 20170713
  2. EPOETIN ALFA [Suspect]
     Active Substance: ERYTHROPOIETIN
     Dosage: UNK
     Route: 042
     Dates: start: 20151215
  3. EPOETIN ALFA [Suspect]
     Active Substance: ERYTHROPOIETIN
     Indication: PRODUCT USED FOR UNKNOWN INDICATION
     Dosage: UNK
     Route: 042
     Dates: start: 20151124, end: 20151214

REACTIONS (4)
  - Peptic ulcer [Recovering/Resolving]
  - Hospitalisation [Recovering/Resolving]
  - Gastrointestinal haemorrhage [Recovering/Resolving]
  - Gastritis [Recovering/Resolving]

NARRATIVE: CASE EVENT DATE: 20170223
